FAERS Safety Report 4631413-0 (Version None)
Quarter: 2005Q2

REPORT INFORMATION
  Report Type: 
  Country: None (occurrence: None)
  Receive Date: 20050407
  Receipt Date: 20050322
  Transmission Date: 20051028
  Serious: Yes (Hospitalization)
  Sender: FDA-Public Use
  Company Number: 2005BI004149

PATIENT
  Age: 45 Year
  Sex: Female
  Weight: 65.7716 kg

DRUGS (9)
  1. AVONEX [Suspect]
     Indication: MULTIPLE SCLEROSIS
     Dosage: 15 UG;QW;IM
     Route: 030
     Dates: start: 19990101, end: 19990101
  2. AVONEX [Suspect]
     Indication: MULTIPLE SCLEROSIS
     Dosage: 30 UG;QW;IM
     Route: 030
     Dates: start: 19990101, end: 20030801
  3. AVONEX [Suspect]
     Indication: MULTIPLE SCLEROSIS
     Dosage: 30 UG;QW;IM
     Route: 030
     Dates: start: 20030801, end: 20050222
  4. AVONEX [Suspect]
     Indication: MULTIPLE SCLEROSIS
     Dosage: 30 UG;QW;IM
     Route: 030
     Dates: start: 20050301
  5. UNIVASC [Concomitant]
  6. ZOCOR [Concomitant]
  7. CELEBREX [Concomitant]
  8. MULTI-VITAMIN [Concomitant]
  9. TYLENOL [Concomitant]

REACTIONS (17)
  - ABASIA [None]
  - ASTHENIA [None]
  - BALANCE DISORDER [None]
  - CELLULITIS [None]
  - CONDITION AGGRAVATED [None]
  - CONTUSION [None]
  - ERYTHEMA [None]
  - FALL [None]
  - GAIT DISTURBANCE [None]
  - HAEMARTHROSIS [None]
  - JOINT INJURY [None]
  - MULTIPLE SCLEROSIS [None]
  - MUSCLE SPASTICITY [None]
  - OSTEOPENIA [None]
  - POLLAKIURIA [None]
  - POSTMENOPAUSE [None]
  - PYREXIA [None]
